FAERS Safety Report 20157816 (Version 3)
Quarter: 2022Q1

REPORT INFORMATION
  Report Type: Spontaneous
  Country: US (occurrence: US)
  Receive Date: 20211207
  Receipt Date: 20220223
  Transmission Date: 20220424
  Serious: Yes (Hospitalization)
  Sender: FDA-Public Use
  Company Number: US-KARYOPHARM-2021KPT001440

PATIENT

DRUGS (14)
  1. XPOVIO [Suspect]
     Active Substance: SELINEXOR
     Indication: Plasma cell myeloma
     Dosage: 80 MG, WEEKLY
     Route: 048
     Dates: start: 20211111, end: 20220214
  2. ACYCLOVIR [Concomitant]
     Active Substance: ACYCLOVIR
  3. PANTOPRAZOLE [Concomitant]
     Active Substance: PANTOPRAZOLE
  4. NIFEDIPINE [Concomitant]
     Active Substance: NIFEDIPINE
  5. CRESTOR [Concomitant]
     Active Substance: ROSUVASTATIN CALCIUM
  6. ZOFRAN [Concomitant]
     Active Substance: ONDANSETRON HYDROCHLORIDE
  7. PROCHLORPERAZINE [Concomitant]
     Active Substance: PROCHLORPERAZINE
  8. KYPROLIS [Concomitant]
     Active Substance: CARFILZOMIB
     Route: 042
  9. GRANISETRON [Concomitant]
     Active Substance: GRANISETRON
  10. DEXAMETHASONE [Concomitant]
     Active Substance: DEXAMETHASONE
  11. METHYLPREDNISOLONE [Concomitant]
     Active Substance: METHYLPREDNISOLONE
  12. SINGULAIR [Concomitant]
     Active Substance: MONTELUKAST SODIUM
  13. ARANESP [Concomitant]
     Active Substance: DARBEPOETIN ALFA
  14. LIDOCAINE\PRILOCAINE HYDROCHLORIDE [Concomitant]
     Active Substance: LIDOCAINE\PRILOCAINE HYDROCHLORIDE
     Route: 061

REACTIONS (4)
  - Diarrhoea [Unknown]
  - Decreased appetite [Not Recovered/Not Resolved]
  - Weight decreased [Not Recovered/Not Resolved]
  - Red blood cell count decreased [Unknown]

NARRATIVE: CASE EVENT DATE: 20211101
